FAERS Safety Report 21712636 (Version 1)
Quarter: 2022Q4

REPORT INFORMATION
  Report Type: Spontaneous
  Country: US (occurrence: None)
  Receive Date: 20221208
  Receipt Date: 20221208
  Transmission Date: 20230113
  Serious: No
  Sender: FDA-Public Use
  Company Number: None

PATIENT
  Age: 80 Year
  Sex: Female
  Weight: 96.16 kg

DRUGS (11)
  1. LENALIDOMIDE [Suspect]
     Active Substance: LENALIDOMIDE
     Dosage: OTHER FREQUENCY : 21D ON 7D OFF;?
     Route: 048
     Dates: start: 202010
  2. ACYCLOVIR [Concomitant]
     Active Substance: ACYCLOVIR
  3. ASPIRIN [Concomitant]
     Active Substance: ASPIRIN
  4. CRESTOR [Concomitant]
     Active Substance: ROSUVASTATIN CALCIUM
  5. FLOVENT HFA [Concomitant]
     Active Substance: FLUTICASONE PROPIONATE
  6. MICARDIS [Concomitant]
     Active Substance: TELMISARTAN
  7. NIFEREX [Concomitant]
  8. NORVASC [Concomitant]
     Active Substance: AMLODIPINE BESYLATE
  9. PREDNISONE [Concomitant]
     Active Substance: PREDNISONE
  10. VELCADE [Concomitant]
     Active Substance: BORTEZOMIB
  11. XGEVA [Suspect]
     Active Substance: DENOSUMAB

REACTIONS (1)
  - Respiratory syncytial virus infection [None]
